FAERS Safety Report 5894114-7 (Version None)
Quarter: 2008Q3

REPORT INFORMATION
  Report Type: 
  Country: None (occurrence: None)
  Receive Date: 20080923
  Receipt Date: 20080707
  Transmission Date: 20090109
  Serious: No
  Sender: FDA-Public Use
  Company Number: US-ASTRAZENECA-2008UW00666

PATIENT
  Age: 10180 Day
  Sex: Male
  Weight: 96.4 kg

DRUGS (4)
  1. SEROQUEL [Suspect]
     Indication: BIPOLAR DISORDER
     Dosage: VARIOUS DOSES, INCLUDING BUT NOT LIMITED TO 25 MG, 100 MG, AND 200 MG
     Route: 048
     Dates: start: 20020401
  2. RISPERDAL [Concomitant]
     Dates: start: 19980101, end: 20020101
  3. LITHIUM CARBONATE [Concomitant]
     Dates: start: 20040101
  4. DEPAKOTE [Concomitant]
     Dates: start: 19970101

REACTIONS (2)
  - DIABETES MELLITUS [None]
  - TOOTH LOSS [None]
